FAERS Safety Report 17605480 (Version 1)
Quarter: 2020Q1

REPORT INFORMATION
  Report Type: Spontaneous
  Country: US (occurrence: US)
  Receive Date: 20200331
  Receipt Date: 20200331
  Transmission Date: 20200409
  Serious: No
  Sender: FDA-Public Use
  Company Number: US-SA-2020SA077746

PATIENT
  Age: 61 Year
  Sex: Male

DRUGS (2)
  1. DUPIXENT [Suspect]
     Active Substance: DUPILUMAB
     Indication: DERMATITIS
     Dosage: UNK UNK, 1X (LOADING DOSE)
     Dates: start: 20200310, end: 20200310
  2. DUPIXENT [Suspect]
     Active Substance: DUPILUMAB
     Dosage: UNK, 1X (LOADING DOSE)
     Dates: start: 202003

REACTIONS (1)
  - Extra dose administered [Unknown]

NARRATIVE: CASE EVENT DATE: 202003
